FAERS Safety Report 10018631 (Version 1)
Quarter: 2014Q1

REPORT INFORMATION
  Report Type: Spontaneous
  Country: CN (occurrence: None)
  Receive Date: 20140312
  Receipt Date: 20140312
  Transmission Date: 20141002
  Serious: Yes (Other)
  Sender: FDA-Public Use
  Company Number: FK201400749

PATIENT
  Age: 43 Year
  Sex: Male

DRUGS (11)
  1. DOXORUBICIN [Suspect]
     Indication: NON-HODGKIN^S LYMPHOMA
     Dosage: 6 CYCLES
     Dates: start: 2005
  2. CISPLATIN [Suspect]
     Indication: NON-HODGKIN^S LYMPHOMA
     Dosage: 3 CYCLES
     Dates: start: 2006
  3. CYTARABINE [Suspect]
     Indication: NON-HODGKIN^S LYMPHOMA
     Dosage: 3 CYCLES
     Dates: start: 2006
  4. ETOPOSIDE [Suspect]
     Indication: NON-HODGKIN^S LYMPHOMA
     Dosage: 1 CYCLE
     Dates: start: 2006
  5. DEXAMETHASONE [Suspect]
     Indication: NON-HODGKIN^S LYMPHOMA
     Dosage: 3 CYCLES
     Dates: start: 2006
  6. CYCLOPHOSPHAMIDE [Suspect]
     Indication: NON-HODGKIN^S LYMPHOMA
     Dosage: 6 CYCLES
     Dates: start: 2005
  7. VINCRISTINE(VINCRISTINE)(VINCRISTINE) [Suspect]
     Indication: NON-HODGKIN^S LYMPHOMA
     Dosage: 6 CYCLES
     Dates: start: 2005
  8. PREDNISONE(PREDNISONE)(PREDNISONE) [Suspect]
     Indication: NON-HODGKIN^S LYMPHOMA
     Dosage: 6 CYCLES
     Dates: start: 2005
  9. RITUXIMAB [Suspect]
     Indication: NON-HODGKIN^S LYMPHOMA
     Dosage: 6 CYCLES
     Dates: start: 2005
  10. MELPHALAN [Suspect]
     Indication: NON-HODGKIN^S LYMPHOMA
     Dosage: 1 CYCLE
     Dates: start: 2006
  11. GEMCITABINE [Suspect]
     Indication: NON-HODGKIN^S LYMPHOMA
     Dosage: 1500 MG, 1 CYCLE
     Dates: start: 2006

REACTIONS (1)
  - Hepatitis B [None]
